FAERS Safety Report 10079473 (Version 1)
Quarter: 2014Q2

REPORT INFORMATION
  Report Type: Report from Study
  Country: US (occurrence: US)
  Receive Date: 20140415
  Receipt Date: 20140415
  Transmission Date: 20141212
  Serious: Yes (Hospitalization)
  Sender: FDA-Public Use
  Company Number: US-MERCK-1404USA007439

PATIENT
  Age: 51 Year
  Sex: Female
  Weight: 49.2 kg

DRUGS (9)
  1. VORINOSTAT [Suspect]
     Indication: ACUTE MYELOID LEUKAEMIA
     Dosage: UNK
     Route: 048
     Dates: start: 20140121
  2. VORINOSTAT [Suspect]
     Dosage: 500 MG, TID
     Route: 048
     Dates: start: 20140309, end: 20140311
  3. CYTARABINE [Suspect]
     Indication: ACUTE MYELOID LEUKAEMIA
     Dosage: UNK
     Route: 042
     Dates: start: 20140121
  4. CYTARABINE [Suspect]
     Dosage: UNK
     Route: 042
     Dates: start: 20140309
  5. IDARUBICIN [Suspect]
     Indication: ACUTE MYELOID LEUKAEMIA
     Dosage: UNK
     Route: 042
     Dates: start: 20140121
  6. IDARUBICIN [Suspect]
     Dosage: UNK
     Route: 042
     Dates: start: 20140309
  7. ACYCLOVIR [Concomitant]
     Indication: ANTIBIOTIC THERAPY
  8. MOXIFLOXACIN HYDROCHLORIDE [Concomitant]
     Indication: ANTIBIOTIC THERAPY
  9. POSACONAZOLE [Concomitant]
     Indication: ANTIBIOTIC THERAPY

REACTIONS (1)
  - Febrile neutropenia [Recovered/Resolved with Sequelae]
